FAERS Safety Report 22647830 (Version 1)
Quarter: 2023Q2

REPORT INFORMATION
  Report Type: Report from Study
  Country: US (occurrence: US)
  Receive Date: 20230628
  Receipt Date: 20230628
  Transmission Date: 20230722
  Serious: Yes (Hospitalization)
  Sender: FDA-Public Use
  Company Number: US-AMGEN-USACT2023110507

PATIENT
  Age: 5 Year
  Sex: Male
  Weight: 30 kg

DRUGS (7)
  1. BLINATUMOMAB [Suspect]
     Active Substance: BLINATUMOMAB
     Indication: B precursor type acute leukaemia
     Dosage: 15 MICROGRAM/SQ. METER, QD
     Route: 042
     Dates: start: 20220916
  2. DEXAMETHASONE [Suspect]
     Active Substance: DEXAMETHASONE
     Indication: B precursor type acute leukaemia
     Dosage: 5 MILLIGRAM, BID
     Route: 065
     Dates: start: 20230220, end: 20230222
  3. DEXAMETHASONE [Suspect]
     Active Substance: DEXAMETHASONE
     Dosage: 6 MILLIGRAM, BID/ TOTAL DOSE ADMINISTERED: 79 MG
     Route: 065
     Dates: start: 20230222
  4. DOXORUBICIN HYDROCHLORIDE [Suspect]
     Active Substance: DOXORUBICIN HYDROCHLORIDE
     Indication: B precursor type acute leukaemia
     Dosage: TOTAL DOSE ADMINISTERED: 26 MG
     Route: 065
     Dates: start: 20230220
  5. RYLAZE [Suspect]
     Active Substance: ASPARAGINASE ERWINIA CHRYSANTHEMI (RECOMBINANT)-RYWN
     Indication: B precursor type acute leukaemia
     Dosage: TOTAL DOSE ADMINISTERED: 90 MG/ GIVEN 3 DOSES OF RYLAZE
     Route: 065
     Dates: start: 20230220
  6. METHOTREXATE [Suspect]
     Active Substance: METHOTREXATE
     Indication: B precursor type acute leukaemia
     Dosage: TOTAL DOSE ADMINISTERED: 12 MG
     Route: 029
     Dates: start: 20230220
  7. VINCRISTINE SULFATE [Suspect]
     Active Substance: VINCRISTINE SULFATE
     Indication: B precursor type acute leukaemia
     Dosage: TOTAL DOSE ADMINISTERED: 1.6 MILLIGRAM
     Route: 065
     Dates: start: 20230220

REACTIONS (2)
  - Stomatitis [Recovered/Resolved]
  - Ileus [Recovering/Resolving]

NARRATIVE: CASE EVENT DATE: 20230226
